FAERS Safety Report 8941866 (Version 3)
Quarter: 2013Q2

REPORT INFORMATION
  Report Type: Report from Study
  Country: JP (occurrence: JP)
  Receive Date: 20121203
  Receipt Date: 20130528
  Transmission Date: 20140414
  Serious: Yes (Death, Other)
  Sender: FDA-Public Use
  Company Number: JP-MERCK-1211JPN012801

PATIENT
  Age: 34 Year
  Sex: Female
  Weight: 54 kg

DRUGS (20)
  1. TEMODAL [Suspect]
     Indication: GLIOBLASTOMA MULTIFORME
     Dosage: 150 MG/M2, QD
     Route: 048
     Dates: start: 20061005, end: 20061009
  2. TEMODAL [Suspect]
     Dosage: 200 MG/M2, QD
     Route: 048
     Dates: start: 20061102, end: 20061106
  3. TEMODAL [Suspect]
     Dosage: 200 MG/M2, QD
     Route: 048
     Dates: start: 20061130, end: 20061204
  4. TEMODAL [Suspect]
     Dosage: 200 MG/M2, QD
     Route: 048
     Dates: start: 20061228, end: 20070101
  5. TEMODAL [Suspect]
     Dosage: 200 MG/M2, QD
     Route: 048
     Dates: start: 20070125, end: 20070129
  6. TEMODAL [Suspect]
     Dosage: 200 MG/M2, QD
     Route: 048
     Dates: start: 20070224, end: 20070228
  7. TEMODAL [Suspect]
     Dosage: 180 MG/M2, QD
     Route: 048
     Dates: start: 20070320, end: 20070324
  8. TEMODAL [Suspect]
     Dosage: 180 MG/M2, QD
     Route: 048
     Dates: start: 20070418, end: 20070422
  9. TEMODAL [Suspect]
     Dosage: 180 MG/M2, QD
     Route: 048
     Dates: start: 20070516, end: 20070520
  10. TEMODAL [Suspect]
     Dosage: 200 MG/M2, QD
     Route: 048
     Dates: start: 20070613, end: 20070617
  11. TEMODAL [Suspect]
     Dosage: 200 MG/M2, QD
     Route: 048
     Dates: start: 20070711, end: 20070715
  12. ALEVIATIN [Suspect]
     Dosage: UNK, FORMULATION: POR
     Route: 048
     Dates: start: 20060703, end: 20070914
  13. TEGRETOL [Suspect]
     Dosage: UNK, FORMULATION: POR
     Route: 048
     Dates: start: 20060703, end: 20070914
  14. GABAPEN [Suspect]
     Indication: CONVULSION
     Dosage: UNK, FORMULATION: POR
     Route: 048
     Dates: start: 20070307, end: 20070816
  15. BAKTAR [Concomitant]
     Indication: ANTIFUNGAL PROPHYLAXIS
     Dosage: UNK, FORMULATION: POR
     Route: 048
     Dates: start: 20070404, end: 20070511
  16. RINDERON [Concomitant]
     Dosage: UNK,
     Route: 048
     Dates: start: 20060703, end: 20070914
  17. GASTER [Concomitant]
     Indication: PROPHYLAXIS
     Dosage: UNK
     Route: 048
     Dates: start: 20060703, end: 20070914
  18. ISOBIDE [Concomitant]
     Dosage: FORMULATION: SOL
     Route: 048
     Dates: start: 20060703, end: 20070717
  19. NAUZELIN [Concomitant]
     Indication: PROPHYLAXIS
     Dosage: FORMULATION : POR
     Route: 048
     Dates: start: 20061129, end: 20061212
  20. HICEE [Concomitant]
     Indication: GINGIVAL HYPERTROPHY
     Dosage: UNK
     Route: 048
     Dates: start: 20061213, end: 20070718

REACTIONS (19)
  - Leukopenia [Fatal]
  - Disease progression [Fatal]
  - Hepatic function abnormal [Unknown]
  - Convulsion [Recovering/Resolving]
  - C-reactive protein increased [Unknown]
  - Gingival hypertrophy [Recovering/Resolving]
  - Nausea [Recovered/Resolved]
  - Nausea [Recovered/Resolved]
  - Nausea [Recovered/Resolved]
  - Nausea [Recovered/Resolved]
  - Nausea [Recovered/Resolved]
  - Nausea [Recovered/Resolved]
  - Vomiting [Recovered/Resolved]
  - Vomiting [Recovered/Resolved]
  - Vomiting [Recovered/Resolved]
  - Vomiting [Recovered/Resolved]
  - Vomiting [Recovered/Resolved]
  - Vomiting [Recovered/Resolved]
  - Lymphocyte count decreased [Recovered/Resolved]
